FAERS Safety Report 13752660 (Version 1)
Quarter: 2017Q3

REPORT INFORMATION
  Report Type: Spontaneous
  Country: US (occurrence: US)
  Receive Date: 20170713
  Receipt Date: 20170713
  Transmission Date: 20171127
  Serious: Yes (Hospitalization, Other)
  Sender: FDA-Public Use
  Company Number: US-BAUSCH-BL-2017-021212

PATIENT
  Age: 74 Year
  Sex: Female

DRUGS (2)
  1. TIMOLOL. [Suspect]
     Active Substance: TIMOLOL
     Indication: OPEN ANGLE GLAUCOMA
     Route: 061
  2. LATANOPROST. [Suspect]
     Active Substance: LATANOPROST
     Indication: OPEN ANGLE GLAUCOMA
     Route: 061

REACTIONS (3)
  - Wheezing [Recovering/Resolving]
  - Chronotropic incompetence [Unknown]
  - Dyspnoea [Recovering/Resolving]
